FAERS Safety Report 20731802 (Version 1)
Quarter: 2022Q2

REPORT INFORMATION
  Report Type: Spontaneous
  Country: JP (occurrence: JP)
  Receive Date: 20220420
  Receipt Date: 20220420
  Transmission Date: 20220720
  Serious: Yes (Death, Other)
  Sender: FDA-Public Use
  Company Number: JP-BAYER-2021A237464

PATIENT
  Age: 61 Year
  Sex: Male

DRUGS (2)
  1. NEXAVAR [Interacting]
     Active Substance: SORAFENIB
     Indication: Follicular thyroid cancer
     Dosage: UNK
     Dates: start: 20200217, end: 20211004
  2. WARFARIN [Interacting]
     Active Substance: WARFARIN
     Indication: Atrial fibrillation
     Dosage: UNK
     Dates: start: 20211005

REACTIONS (7)
  - Thalamus haemorrhage [Fatal]
  - Brain stem haemorrhage [Fatal]
  - Thrombotic cerebral infarction [Fatal]
  - Labelled drug-drug interaction medication error [Fatal]
  - Atrial fibrillation [None]
  - Muscular weakness [Fatal]
  - Dyslalia [Fatal]

NARRATIVE: CASE EVENT DATE: 20211005
